FAERS Safety Report 5778656-0 (Version None)
Quarter: 2008Q2

REPORT INFORMATION
  Report Type: 
  Country: None (occurrence: None)
  Receive Date: 20080619
  Receipt Date: 20080611
  Transmission Date: 20081010
  Serious: Yes (Other)
  Sender: FDA-Public Use
  Company Number: B0436778A

PATIENT
  Age: 23 Year
  Sex: Male

DRUGS (3)
  1. SEROXAT [Suspect]
     Route: 065
     Dates: start: 19970812
  2. BUSPAR [Concomitant]
     Route: 065
  3. MIRTAZAPINE [Concomitant]
     Route: 065
     Dates: start: 20051004

REACTIONS (33)
  - ABDOMINAL PAIN [None]
  - ADVERSE DRUG REACTION [None]
  - AGITATION [None]
  - ANXIETY [None]
  - CONFUSIONAL STATE [None]
  - DECREASED APPETITE [None]
  - DEPRESSED MOOD [None]
  - DIARRHOEA [None]
  - DISTURBANCE IN ATTENTION [None]
  - DIZZINESS [None]
  - DRUG DEPENDENCE [None]
  - ERECTILE DYSFUNCTION [None]
  - FATIGUE [None]
  - FEAR [None]
  - FEELING ABNORMAL [None]
  - FLIGHT OF IDEAS [None]
  - HYPERHIDROSIS [None]
  - INFLUENZA LIKE ILLNESS [None]
  - INSOMNIA [None]
  - LETHARGY [None]
  - MALAISE [None]
  - MEMORY IMPAIRMENT [None]
  - MICTURITION URGENCY [None]
  - NAUSEA [None]
  - NIGHTMARE [None]
  - POLLAKIURIA [None]
  - REBOUND EFFECT [None]
  - SLEEP DISORDER [None]
  - SUICIDAL IDEATION [None]
  - TREMOR [None]
  - VOMITING [None]
  - WEIGHT DECREASED [None]
  - WITHDRAWAL SYNDROME [None]
